FAERS Safety Report 8225644-0 (Version None)
Quarter: 2012Q1

REPORT INFORMATION
  Report Type: 
  Country: None (occurrence: None)
  Receive Date: 20120321
  Receipt Date: 20120313
  Transmission Date: 20120608
  Serious: Yes (Hospitalization)
  Sender: FDA-Public Use
  Company Number: GR-GILEAD-2012-0052380

PATIENT
  Age: 76 Year
  Sex: Male

DRUGS (7)
  1. ALDACTONE [Concomitant]
     Indication: ISCHAEMIC CARDIOMYOPATHY
     Dosage: UNK
  2. LASIX [Concomitant]
     Indication: ISCHAEMIC CARDIOMYOPATHY
     Dosage: UNK
  3. SALOSPIR [Concomitant]
     Indication: ISCHAEMIC CARDIOMYOPATHY
     Dosage: UNK
  4. NEURONTIN [Concomitant]
     Indication: TRIGEMINAL NEURALGIA
     Dosage: UNK
  5. RANOLAZINE [Suspect]
     Indication: ANGINA PECTORIS
     Dosage: 375 MG, BID
     Route: 048
     Dates: start: 20120213, end: 20120229
  6. DIOVAN [Concomitant]
     Indication: ISCHAEMIC CARDIOMYOPATHY
     Dosage: UNK
  7. MONOSORDIL [Concomitant]
     Indication: CORONARY ARTERY DISEASE
     Dosage: UNK

REACTIONS (1)
  - HYPONATRAEMIA [None]
